FAERS Safety Report 25124230 (Version 2)
Quarter: 2025Q2

REPORT INFORMATION
  Report Type: Spontaneous
  Country: CA (occurrence: CA)
  Receive Date: 20250326
  Receipt Date: 20250519
  Transmission Date: 20250717
  Serious: Yes (Other)
  Sender: NORDIC PHARMA
  Company Number: CA-NORDICGR-062117

PATIENT
  Age: 82 Year
  Sex: Female

DRUGS (4)
  1. METHOTREXATE [Suspect]
     Active Substance: METHOTREXATE
     Indication: Product used for unknown indication
     Route: 065
  2. RINVOQ [Concomitant]
     Active Substance: UPADACITINIB
     Indication: Rheumatoid arthritis
     Route: 048
  3. RITUXIMAB [Concomitant]
     Active Substance: RITUXIMAB
     Indication: Product used for unknown indication
     Route: 065
  4. XELJANZ [Concomitant]
     Active Substance: TOFACITINIB CITRATE
     Indication: Product used for unknown indication
     Route: 065

REACTIONS (8)
  - C-reactive protein abnormal [Recovered/Resolved]
  - Lymphopenia [Recovered/Resolved]
  - Arthralgia [Recovered/Resolved]
  - Cytopenia [Recovered/Resolved]
  - Joint swelling [Recovered/Resolved]
  - Malignant neoplasm progression [Recovered/Resolved]
  - Musculoskeletal stiffness [Recovered/Resolved]
  - Pancytopenia [Recovered/Resolved]
